FAERS Safety Report 9336009 (Version 4)
Quarter: 2013Q4

REPORT INFORMATION
  Report Type: Spontaneous
  Country: BR (occurrence: BR)
  Receive Date: 20130607
  Receipt Date: 20131015
  Transmission Date: 20140711
  Serious: Yes (Hospitalization, Other)
  Sender: FDA-Public Use
  Company Number: BR-BIOGENIDEC-2013BI008204

PATIENT
  Age: 32 Year
  Sex: Female
  Weight: 81 kg

DRUGS (4)
  1. TYSABRI [Suspect]
     Indication: PRODUCT USED FOR UNKNOWN INDICATION
     Route: 042
     Dates: start: 20110521, end: 20120905
  2. FOLIC ACID [Concomitant]
     Indication: PREGNANCY
     Route: 048
  3. BUSCOPAN [Concomitant]
     Indication: PRODUCT USED FOR UNKNOWN INDICATION
  4. UTROGESTAN [Concomitant]
     Indication: PRODUCT USED FOR UNKNOWN INDICATION

REACTIONS (6)
  - Hypoaesthesia [Unknown]
  - Iron deficiency anaemia [Not Recovered/Not Resolved]
  - Dizziness [Not Recovered/Not Resolved]
  - Uterine spasm [Unknown]
  - Pain [Unknown]
  - Abdominal pain upper [Unknown]
